FAERS Safety Report 18644584 (Version 1)
Quarter: 2020Q4

REPORT INFORMATION
  Report Type: Spontaneous
  Country: US (occurrence: US)
  Receive Date: 20201221
  Receipt Date: 20201221
  Transmission Date: 20210114
  Serious: No
  Sender: FDA-Public Use
  Company Number: US-BIOHAVEN PHARMACEUTICALS-2020BHV00607

PATIENT

DRUGS (1)
  1. NURTEC ODT [Suspect]
     Active Substance: RIMEGEPANT SULFATE
     Dosage: UNK ^ONE OF THESE^
     Dates: start: 20201008

REACTIONS (1)
  - Facial discomfort [Not Recovered/Not Resolved]

NARRATIVE: CASE EVENT DATE: 202010
